FAERS Safety Report 5195598-2 (Version None)
Quarter: 2007Q1

REPORT INFORMATION
  Report Type: 
  Country: None (occurrence: None)
  Receive Date: 20070102
  Receipt Date: 20061221
  Transmission Date: 20070707
  Serious: Yes (Life-Threatening)
  Sender: FDA-Public Use
  Company Number: FR-AVENTIS-200614523FR

PATIENT
  Age: 58 Year
  Sex: Female

DRUGS (3)
  1. LASIX [Suspect]
     Route: 042
  2. CORDARONE [Concomitant]
     Indication: ARRHYTHMIA SUPRAVENTRICULAR
     Route: 048
  3. LEVOTHYROXINE SODIUM [Concomitant]
     Indication: HYPOTHYROIDISM
     Dates: start: 20050601

REACTIONS (4)
  - CARDIO-RESPIRATORY ARREST [None]
  - ELECTROCARDIOGRAM QT PROLONGED [None]
  - HYPOTHYROIDISM [None]
  - TORSADE DE POINTES [None]
